FAERS Safety Report 8199154-3 (Version None)
Quarter: 2012Q1

REPORT INFORMATION
  Report Type: 
  Country: None (occurrence: None)
  Receive Date: 20120309
  Receipt Date: 20120306
  Transmission Date: 20120608
  Serious: Yes (Life-Threatening, Hospitalization)
  Sender: FDA-Public Use
  Company Number: GB-PFIZER INC-2012060517

PATIENT
  Age: 49 Year
  Sex: Female
  Weight: 77.6 kg

DRUGS (5)
  1. LANSOPRAZOLE [Concomitant]
     Indication: ANTACID THERAPY
     Dosage: 30 MG, 1X/DAY
     Route: 048
     Dates: start: 20120216
  2. DEXAMETHASONE [Concomitant]
     Indication: PAIN
     Dosage: 2 MG, 1X/DAY
     Route: 048
     Dates: start: 20120216
  3. PAROXETINE [Concomitant]
     Indication: DEPRESSION
     Dosage: 20 MG, 1X/DAY
     Route: 048
     Dates: start: 20010101
  4. AXITINIB [Suspect]
     Dosage: 5 MG, UNK
     Dates: start: 20120202, end: 20120301
  5. PARACETAMOL [Concomitant]
     Indication: PAIN
     Dosage: 1 G, 4X/DAY
     Route: 048
     Dates: start: 20120209

REACTIONS (2)
  - RENAL ARTERY DISSECTION [None]
  - PULMONARY EMBOLISM [None]
